FAERS Safety Report 13374077 (Version 1)
Quarter: 2017Q1

REPORT INFORMATION
  Report Type: Spontaneous
  Country: CZ (occurrence: CZ)
  Receive Date: 20170327
  Receipt Date: 20170327
  Transmission Date: 20170429
  Serious: Yes (Other)
  Sender: FDA-Public Use
  Company Number: CZ-PFIZER INC-2017121566

PATIENT
  Age: 70 Year
  Sex: Male

DRUGS (3)
  1. TYGACIL [Concomitant]
     Active Substance: TIGECYCLINE
  2. PHENYTOIN SODIUM. [Suspect]
     Active Substance: PHENYTOIN SODIUM
  3. HYDROCORTISONE. [Concomitant]
     Active Substance: HYDROCORTISONE
     Dosage: 100 MG, 3X/DAY

REACTIONS (2)
  - Epilepsy [Unknown]
  - Drug eruption [Unknown]
